FAERS Safety Report 6960592-5 (Version None)
Quarter: 2010Q3

REPORT INFORMATION
  Report Type: 
  Country: None (occurrence: None)
  Receive Date: 20100901
  Receipt Date: 20100825
  Transmission Date: 20110219
  Serious: Yes (Hospitalization)
  Sender: FDA-Public Use
  Company Number: US-PFIZER INC-2010087306

PATIENT
  Sex: Male
  Weight: 98.322 kg

DRUGS (17)
  1. PF-04383119 [Suspect]
     Indication: OSTEOARTHRITIS
     Dosage: EVERY 8 WEEKS
     Route: 042
     Dates: start: 20091118, end: 20100309
  2. NEURONTIN [Suspect]
     Dosage: 300 MG, AS NEEDED
     Route: 048
     Dates: start: 20100614
  3. ADVIL LIQUI-GELS [Suspect]
     Indication: PAIN IN EXTREMITY
     Dosage: 200 MG, AS NEEDED
     Route: 048
     Dates: start: 20091126
  4. TYLENOL-500 [Suspect]
     Indication: PAIN IN EXTREMITY
     Dosage: 500 MG, AS NEEDED
     Route: 048
     Dates: start: 20100309
  5. TYLENOL-500 [Suspect]
     Indication: ARTHRALGIA
  6. CODEINE [Suspect]
     Indication: PAIN IN EXTREMITY
     Dosage: 30 MG, AS NEEDED
     Route: 048
     Dates: start: 20100627
  7. CODEINE [Suspect]
     Indication: ARTHRALGIA
  8. GLUCOSAMINE [Concomitant]
     Indication: SUPPLEMENTATION THERAPY
     Dosage: 1500 MG, 1X/DAY
     Route: 048
     Dates: start: 20090801
  9. CENTRUM [Concomitant]
     Indication: SUPPLEMENTATION THERAPY
     Dosage: 1 TAB ONCE DAILY
     Route: 048
     Dates: start: 20040101
  10. NORVASC [Concomitant]
     Indication: HYPERTENSION
     Dosage: 5 MG, 1X/DAY
     Route: 048
     Dates: start: 20090701
  11. VALSARTAN [Concomitant]
     Indication: HYPERTENSION
     Dosage: 160 MG, 1X/DAY
     Route: 048
     Dates: start: 20040101
  12. CYMBALTA [Concomitant]
     Indication: ANXIETY
     Dosage: 20 MG, 1X/DAY
     Route: 048
     Dates: start: 20020101
  13. TRAZODONE [Concomitant]
     Indication: ANXIETY
     Dosage: 50 MG, 1X/DAY (QPM)
     Route: 048
     Dates: start: 20020101
  14. UROXATRAL [Concomitant]
     Indication: BENIGN PROSTATIC HYPERPLASIA
     Dosage: 10 MG, 1X/DAY
     Route: 048
     Dates: start: 20090101
  15. PRILOSEC [Concomitant]
     Indication: PROPHYLAXIS
     Dosage: 1 TABLET
     Route: 048
     Dates: start: 20100512
  16. DIOVAN [Concomitant]
     Indication: HYPERTENSION
     Dosage: 160 MG, 1X/DAY
     Route: 048
     Dates: start: 20040101
  17. CIALIS [Concomitant]
     Indication: ERECTILE DYSFUNCTION
     Dosage: 50 MG, AS NEEDED
     Route: 048
     Dates: start: 20050101

REACTIONS (2)
  - ILEUS PARALYTIC [None]
  - OSTEOARTHRITIS [None]
